FAERS Safety Report 5055151-8 (Version None)
Quarter: 2006Q3

REPORT INFORMATION
  Report Type: 
  Country: None (occurrence: None)
  Receive Date: 20060719
  Receipt Date: 20060703
  Transmission Date: 20061208
  Serious: Yes (Other)
  Sender: FDA-Public Use
  Company Number: US-ROCHE-454219

PATIENT
  Age: 38 Year
  Sex: Male

DRUGS (2)
  1. PEGASYS [Suspect]
     Route: 050
     Dates: start: 20060127
  2. COPEGUS [Suspect]
     Route: 048
     Dates: start: 20060127

REACTIONS (1)
  - HEPATIC NEOPLASM MALIGNANT [None]
